FAERS Safety Report 21915687 (Version 1)
Quarter: 2023Q1

REPORT INFORMATION
  Report Type: Spontaneous
  Country: US (occurrence: None)
  Receive Date: 20230125
  Receipt Date: 20230125
  Transmission Date: 20230417
  Serious: No
  Sender: FDA-Public Use
  Company Number: None

PATIENT
  Age: 70 Year
  Sex: Male
  Weight: 79.38 kg

DRUGS (14)
  1. ABIRATERONE ACETATE [Suspect]
     Active Substance: ABIRATERONE ACETATE
     Indication: Prostate cancer
     Dosage: FREQUENCY : DAILY;?
     Route: 048
  2. PREDNISONE [Suspect]
     Active Substance: PREDNISONE
     Indication: Prostate cancer
     Dosage: FREQUENCY : TWICE A DAY;?
     Route: 048
  3. ADVIL [Concomitant]
     Active Substance: IBUPROFEN
  4. Amoxicillin-Pot Clalvulanate [Concomitant]
  5. ASPIRIN [Concomitant]
     Active Substance: ASPIRIN
  6. CITALOPRAM [Concomitant]
     Active Substance: CITALOPRAM HYDROBROMIDE
  7. GABAPENTIN [Concomitant]
     Active Substance: GABAPENTIN
  8. LUPRON [Concomitant]
     Active Substance: LEUPROLIDE ACETATE
  9. MELATONIN [Concomitant]
     Active Substance: MELATONIN
  10. OMEGA-3 ACIDS [Concomitant]
     Active Substance: OMEGA-3 FATTY ACIDS
  11. OMEPRAZOLE [Concomitant]
     Active Substance: OMEPRAZOLE
  12. CALCIUM [Concomitant]
     Active Substance: CALCIUM
  13. ROSUVASTATIN [Concomitant]
     Active Substance: ROSUVASTATIN
  14. XTIVA [Concomitant]

REACTIONS (2)
  - Prostate cancer [None]
  - Disease progression [None]
